FAERS Safety Report 10950465 (Version 1)
Quarter: 2015Q1

REPORT INFORMATION
  Report Type: Spontaneous
  Country: US (occurrence: None)
  Receive Date: 20150323
  Receipt Date: 20150323
  Transmission Date: 20150721
  Serious: Yes (Hospitalization, Disabling)
  Sender: FDA-Public Use
  Company Number: None

PATIENT
  Age: 40 Year
  Sex: Female
  Weight: 54.43 kg

DRUGS (8)
  1. CLONOPIN [Concomitant]
     Active Substance: CLONAZEPAM
  2. MAGNESIUM [Concomitant]
     Active Substance: MAGNESIUM
  3. DEPO-PROVERA [Suspect]
     Active Substance: MEDROXYPROGESTERONE ACETATE
     Indication: MENORRHAGIA
     Dosage: 4 TIMES A YEAR
     Route: 030
     Dates: start: 20140507, end: 20140813
  4. CHAMOMILE TEA [Concomitant]
     Active Substance: MATRICARIA RECUTITA
  5. PROPONOLOL [Concomitant]
  6. MULTIVITAMIN [Concomitant]
     Active Substance: VITAMINS
  7. CALCIUM [Concomitant]
     Active Substance: CALCIUM
  8. POTASSIUM [Concomitant]
     Active Substance: POTASSIUM

REACTIONS (6)
  - Irritability [None]
  - Panic disorder [None]
  - Palpitations [None]
  - Hyperacusis [None]
  - Personality change [None]
  - Panic attack [None]

NARRATIVE: CASE EVENT DATE: 20140927
